FAERS Safety Report 6732636-7 (Version None)
Quarter: 2010Q2

REPORT INFORMATION
  Report Type: 
  Country: None (occurrence: None)
  Receive Date: 20100517
  Receipt Date: 20100510
  Transmission Date: 20101027
  Serious: Yes (Hospitalization)
  Sender: FDA-Public Use
  Company Number: 2010SP026714

PATIENT
  Age: 77 Year
  Sex: Female

DRUGS (1)
  1. (PEGINTERFERON ALFA-2B / 01543001/) [Suspect]
     Indication: HEPATITIS C
     Dosage: SC
     Route: 058
     Dates: start: 20080118

REACTIONS (5)
  - ATELECTASIS [None]
  - BRONCHIECTASIS [None]
  - LUNG DISORDER [None]
  - MYCOBACTERIUM AVIUM COMPLEX INFECTION [None]
  - PRODUCTIVE COUGH [None]
